FAERS Safety Report 8391100-2 (Version None)
Quarter: 2012Q2

REPORT INFORMATION
  Report Type: 
  Country: None (occurrence: None)
  Receive Date: 20120529
  Receipt Date: 20120518
  Transmission Date: 20120825
  Serious: Yes (Disabling, Other)
  Sender: FDA-Public Use
  Company Number: US-JNJFOC-20120516183

PATIENT
  Sex: Female
  Weight: 54.43 kg

DRUGS (7)
  1. REMICADE [Suspect]
     Indication: RHEUMATOID ARTHRITIS
     Route: 042
     Dates: start: 20120502, end: 20120502
  2. FOLIC ACID [Concomitant]
     Indication: RHEUMATOID ARTHRITIS
     Route: 048
     Dates: start: 20050101
  3. REMICADE [Suspect]
     Route: 042
     Dates: start: 20120201
  4. REMICADE [Suspect]
     Route: 042
     Dates: start: 20120301
  5. PRILOSEC [Concomitant]
     Indication: DYSPEPSIA
     Route: 048
     Dates: start: 20111001
  6. PREDNISONE [Concomitant]
     Indication: RHEUMATOID ARTHRITIS
     Route: 048
     Dates: start: 20050101
  7. METHOTREXATE [Concomitant]
     Indication: RHEUMATOID ARTHRITIS
     Route: 048
     Dates: start: 20050101

REACTIONS (12)
  - ANXIETY [None]
  - INSOMNIA [None]
  - ADVERSE DRUG REACTION [None]
  - VOMITING [None]
  - DRUG INEFFECTIVE [None]
  - DEPRESSION [None]
  - DIZZINESS [None]
  - RHEUMATOID ARTHRITIS [None]
  - COUGH [None]
  - CHEST DISCOMFORT [None]
  - INFUSION RELATED REACTION [None]
  - PALLOR [None]
